FAERS Safety Report 5782030-0 (Version None)
Quarter: 2008Q2

REPORT INFORMATION
  Report Type: 
  Country: None (occurrence: None)
  Receive Date: 20080623
  Receipt Date: 20080617
  Transmission Date: 20081010
  Serious: Yes (Hospitalization)
  Sender: FDA-Public Use
  Company Number: US-MERCK-0806USA03412

PATIENT
  Age: 69 Year
  Sex: Male

DRUGS (3)
  1. PRINIVIL [Suspect]
     Indication: BLOOD PRESSURE
     Route: 048
  2. ANTIMICROBIAL (UNSPECIFIED) [Concomitant]
     Route: 065
  3. [THERAPY UNSPECIFIED] [Concomitant]
     Route: 065

REACTIONS (2)
  - BLOOD PRESSURE INADEQUATELY CONTROLLED [None]
  - DRUG INEFFECTIVE [None]
